FAERS Safety Report 17684873 (Version 1)
Quarter: 2020Q2

REPORT INFORMATION
  Report Type: Spontaneous
  Country: US (occurrence: US)
  Receive Date: 20200417
  Receipt Date: 20200417
  Transmission Date: 20200714
  Serious: Yes (Hospitalization)
  Sender: FDA-Public Use
  Company Number: None

PATIENT
  Age: 60 Year
  Sex: Male

DRUGS (1)
  1. GADOLINIUM-BASED CONTRAST AGENT [Suspect]
     Active Substance: GADOLINIUM

REACTIONS (8)
  - Myalgia [None]
  - Movement disorder [None]
  - Scan with contrast [None]
  - Fatigue [None]
  - Hypersomnia [None]
  - Malaise [None]
  - Pain in extremity [None]
  - Diarrhoea [None]

NARRATIVE: CASE EVENT DATE: 20200329
